FAERS Safety Report 10025834 (Version 2)
Quarter: 2014Q2

REPORT INFORMATION
  Report Type: Spontaneous
  Country: CH (occurrence: CH)
  Receive Date: 20140320
  Receipt Date: 20140515
  Transmission Date: 20141212
  Serious: Yes (Hospitalization)
  Sender: FDA-Public Use
  Company Number: CH-WATSON-2014-05023

PATIENT
  Sex: Female
  Weight: 57 kg

DRUGS (3)
  1. KENTERA (WATSON LABORATORIES) [Suspect]
     Indication: URINARY INCONTINENCE
     Dosage: UNK, UNKNOWN
     Route: 062
     Dates: start: 20140224, end: 20140226
  2. KENTERA (WATSON LABORATORIES) [Suspect]
     Dosage: UNK, UNKNOWN
     Route: 062
     Dates: start: 20140219, end: 20140222
  3. KENTERA (WATSON LABORATORIES) [Suspect]
     Dosage: UNK, UNKNOWN
     Route: 062
     Dates: start: 20140216, end: 20140219

REACTIONS (21)
  - Arrhythmia [Unknown]
  - Muscle twitching [Unknown]
  - Paraesthesia [Unknown]
  - Feeling hot [Unknown]
  - Diarrhoea [Unknown]
  - Dysuria [Unknown]
  - Dry mouth [Unknown]
  - Epistaxis [Unknown]
  - Abdominal distension [Unknown]
  - Hyperhidrosis [Unknown]
  - Insomnia [Unknown]
  - Fatigue [Unknown]
  - Decreased appetite [Unknown]
  - Pain [Unknown]
  - Feeling abnormal [Unknown]
  - Burning sensation [Unknown]
  - Flatulence [Unknown]
  - Erythema [Unknown]
  - Vascular injury [Unknown]
  - Dry skin [Unknown]
  - Unevaluable event [Unknown]
